FAERS Safety Report 23960210 (Version 2)
Quarter: 2024Q2

REPORT INFORMATION
  Report Type: Other
  Country: GB (occurrence: GB)
  Receive Date: 20240611
  Receipt Date: 20240625
  Transmission Date: 20240715
  Serious: Yes (Hospitalization, Disabling, Other)
  Sender: FDA-Public Use
  Company Number: None

PATIENT

DRUGS (3)
  1. LACOSAMIDE [Suspect]
     Active Substance: LACOSAMIDE
     Indication: Epilepsy
     Dosage: 50MG TWICE A DAY MORNING AND NIGHT. UPPED TO 2X 50 MG ON 3/5/24
     Route: 065
     Dates: start: 20240402, end: 20240531
  2. LACOSAMIDE [Suspect]
     Active Substance: LACOSAMIDE
     Dosage: 50MG TWICE A DAY MORNING AND NIGHT. UPPED TO 2X 50 MG ON 3/5/24
     Route: 065
     Dates: start: 20240204, end: 20240531
  3. LAMOTRIGINE [Concomitant]
     Active Substance: LAMOTRIGINE
     Indication: Epilepsy
     Route: 065

REACTIONS (6)
  - Amnesia [Not Recovered/Not Resolved]
  - Delirium [Unknown]
  - Loss of consciousness [Recovered/Resolved]
  - Tremor [Recovered/Resolved]
  - Medication error [Unknown]
  - Headache [Unknown]

NARRATIVE: CASE EVENT DATE: 20240501
